FAERS Safety Report 13500438 (Version 2)
Quarter: 2017Q2

REPORT INFORMATION
  Report Type: Spontaneous
  Country: FR (occurrence: FR)
  Receive Date: 20170501
  Receipt Date: 20170523
  Transmission Date: 20170830
  Serious: Yes (Disabling, Other)
  Sender: FDA-Public Use
  Company Number: FR-ABBVIE-17P-056-1959828-00

PATIENT
  Age: 18 Year
  Sex: Female

DRUGS (4)
  1. MICROPAKINE [Suspect]
     Active Substance: VALPROIC ACID
     Indication: PETIT MAL EPILEPSY
     Route: 048
  2. MICROPAKINE [Suspect]
     Active Substance: VALPROIC ACID
     Route: 048
     Dates: start: 20160210
  3. MICROPAKINE [Suspect]
     Active Substance: VALPROIC ACID
     Route: 048
     Dates: start: 20160210
  4. MICROPAKINE L.P. [Suspect]
     Active Substance: VALPROATE SODIUM
     Indication: PETIT MAL EPILEPSY
     Route: 048
     Dates: start: 201305, end: 2015

REACTIONS (6)
  - Fatigue [Not Recovered/Not Resolved]
  - School refusal [Not Recovered/Not Resolved]
  - Depression [Not Recovered/Not Resolved]
  - Poor personal hygiene [Not Recovered/Not Resolved]
  - Unevaluable event [Unknown]
  - Withdrawal syndrome [Unknown]

NARRATIVE: CASE EVENT DATE: 201702
